FAERS Safety Report 21257505 (Version 1)
Quarter: 2022Q3

REPORT INFORMATION
  Report Type: Spontaneous
  Country: DE (occurrence: None)
  Receive Date: 20220826
  Receipt Date: 20220826
  Transmission Date: 20221026
  Serious: Yes (Other)
  Sender: FDA-Public Use
  Company Number: DE-ROCHE-3130312

PATIENT
  Sex: Female
  Weight: 59 kg

DRUGS (4)
  1. TOCILIZUMAB [Suspect]
     Active Substance: TOCILIZUMAB
     Indication: Giant cell arteritis
     Route: 058
     Dates: start: 20220111
  2. PREDNISOLONE [Concomitant]
     Active Substance: PREDNISOLONE
  3. CALCIUM PLUS (UNK INGREDIENTS) [Concomitant]
  4. VITAMIN D3 [Concomitant]
     Active Substance: CHOLECALCIFEROL

REACTIONS (8)
  - Eye haemorrhage [Recovering/Resolving]
  - Headache [Recovering/Resolving]
  - Periorbital haematoma [Unknown]
  - Scleritis [Recovering/Resolving]
  - COVID-19 [Unknown]
  - Injection site erythema [Unknown]
  - Injection site pruritus [Unknown]
  - Keratitis [Unknown]

NARRATIVE: CASE EVENT DATE: 20220301
